FAERS Safety Report 6180969-8 (Version None)
Quarter: 2009Q2

REPORT INFORMATION
  Report Type: 
  Country: None (occurrence: None)
  Receive Date: 20090504
  Receipt Date: 20090504
  Transmission Date: 20091009
  Serious: Yes (Other)
  Sender: FDA-Public Use
  Company Number: None

PATIENT
  Age: 47 Year
  Sex: Female
  Weight: 53.0709 kg

DRUGS (1)
  1. ULTRAM [Suspect]
     Dosage: 50MG

REACTIONS (9)
  - AGITATION [None]
  - DRUG INTERACTION [None]
  - DYSPNOEA [None]
  - FEAR [None]
  - FEELING ABNORMAL [None]
  - MENTAL DISORDER [None]
  - MOOD ALTERED [None]
  - PANIC ATTACK [None]
  - STRESS [None]
